FAERS Safety Report 21692151 (Version 2)
Quarter: 2023Q1

REPORT INFORMATION
  Report Type: Spontaneous
  Country: US (occurrence: US)
  Receive Date: 20221207
  Receipt Date: 20230214
  Transmission Date: 20230418
  Serious: No
  Sender: FDA-Public Use
  Company Number: US-BRISTOL-MYERS SQUIBB COMPANY-2022-149183

PATIENT
  Age: 77 Year
  Sex: Female

DRUGS (1)
  1. REVLIMID [Suspect]
     Active Substance: LENALIDOMIDE
     Indication: Plasma cell myeloma
     Route: 048
     Dates: start: 20221115

REACTIONS (6)
  - Pruritus [Unknown]
  - Skin warm [Unknown]
  - Sensitive skin [Unknown]
  - Swelling face [Unknown]
  - Swelling [Unknown]
  - Off label use [Unknown]

NARRATIVE: CASE EVENT DATE: 20221201
